FAERS Safety Report 9853581 (Version 2)
Quarter: 2014Q1

REPORT INFORMATION
  Report Type: Report from Study
  Country: CA (occurrence: CA)
  Receive Date: 20140129
  Receipt Date: 20140227
  Transmission Date: 20141002
  Serious: Yes (Other)
  Sender: FDA-Public Use
  Company Number: CA-EISAI INC-E2007-01503-SOL-CA

PATIENT
  Age: 15 Year
  Sex: Female

DRUGS (3)
  1. FYCOMPA (PERAMPANEL) [Suspect]
     Indication: TEMPORAL LOBE EPILEPSY
     Route: 048
     Dates: start: 20131204
  2. TOPIRAMATE [Concomitant]
     Indication: TEMPORAL LOBE EPILEPSY
     Dosage: 1000 MG DAILY (150 MG AND 100 MG AND 750 MG DAILY)
     Route: 048
  3. LAMOTRIGINE [Concomitant]
     Indication: TEMPORAL LOBE EPILEPSY
     Dosage: 750 MG DAILY
     Route: 048

REACTIONS (2)
  - Convulsion [Unknown]
  - Dizziness [Unknown]
